FAERS Safety Report 20170628 (Version 1)
Quarter: 2021Q4

REPORT INFORMATION
  Report Type: Spontaneous
  Country: PL (occurrence: PL)
  Receive Date: 20211210
  Receipt Date: 20211210
  Transmission Date: 20220303
  Serious: Yes (Other)
  Sender: FDA-Public Use
  Company Number: PL-ORGANON-O2112POL000362

PATIENT
  Age: 66 Year
  Sex: Female
  Weight: 62 kg

DRUGS (3)
  1. BETAMETHASONE SODIUM PHOSPHATE [Suspect]
     Active Substance: BETAMETHASONE SODIUM PHOSPHATE
     Indication: Asthma
     Dosage: UNK
  2. PREDNISONE [Concomitant]
     Active Substance: PREDNISONE
     Indication: Asthma
     Dosage: HIGH DOSES
  3. PREDNISONE [Concomitant]
     Active Substance: PREDNISONE
     Dosage: LESS THAN 20 MG ({20 MG), QD (PER DAY)

REACTIONS (6)
  - Diabetes mellitus [Unknown]
  - Obesity [Unknown]
  - Vascular fragility [Unknown]
  - Sleep disorder [Unknown]
  - Hypertension [Unknown]
  - Depression [Unknown]
